FAERS Safety Report 16016699 (Version 1)
Quarter: 2019Q1

REPORT INFORMATION
  Report Type: Spontaneous
  Country: US (occurrence: US)
  Receive Date: 20190228
  Receipt Date: 20190228
  Transmission Date: 20190418
  Serious: Yes (Other)
  Sender: FDA-Public Use
  Company Number: PHEH2019US008190

PATIENT
  Sex: Female

DRUGS (3)
  1. FEMARA [Suspect]
     Active Substance: LETROZOLE
     Indication: BREAST CANCER
     Dosage: UNK UNK, QD
     Route: 048
  2. IBRANCE [Suspect]
     Active Substance: PALBOCICLIB
     Indication: BREAST CANCER
     Dosage: 125 MG, QD
     Route: 048
     Dates: end: 20190124
  3. IBRANCE [Suspect]
     Active Substance: PALBOCICLIB
     Dosage: 75 MG, QD (FOR 21 DAYS ON AND 7 DAYS OFF)
     Route: 048
     Dates: start: 20190205

REACTIONS (13)
  - Orthostatic hypotension [Unknown]
  - Dizziness [Unknown]
  - Decreased appetite [Unknown]
  - Leukopenia [Unknown]
  - Diarrhoea [Unknown]
  - Neutropenia [Unknown]
  - Anaemia [Unknown]
  - Nausea [Recovering/Resolving]
  - Vomiting [Unknown]
  - Fatigue [Unknown]
  - Dehydration [Unknown]
  - Alopecia [Unknown]
  - Arthralgia [Unknown]
